FAERS Safety Report 6898851-7 (Version None)
Quarter: 2010Q3

REPORT INFORMATION
  Report Type: 
  Country: None (occurrence: None)
  Receive Date: 20100802
  Receipt Date: 20071206
  Transmission Date: 20110219
  Serious: Yes (Other)
  Sender: FDA-Public Use
  Company Number: US-PFIZER INC-2007103308

PATIENT
  Sex: Male
  Weight: 88.636 kg

DRUGS (11)
  1. LYRICA [Suspect]
     Indication: NEURALGIA
     Dates: start: 20071101
  2. ALLOPURINOL [Concomitant]
  3. AVAPRO [Concomitant]
  4. TRIAMTERENE [Concomitant]
  5. FLOMAX [Concomitant]
  6. BUFFERIN [Concomitant]
  7. CENTRUM SILVER [Concomitant]
  8. LEVOXYL [Concomitant]
  9. IBUPROFEN [Concomitant]
  10. MALARONE [Concomitant]
  11. INDOCIN [Concomitant]

REACTIONS (1)
  - VISION BLURRED [None]
